FAERS Safety Report 10662200 (Version 1)
Quarter: 2014Q4

REPORT INFORMATION
  Report Type: Spontaneous
  Country: BR (occurrence: BR)
  Receive Date: 20141218
  Receipt Date: 20141218
  Transmission Date: 20150529
  Serious: Yes (Other)
  Sender: FDA-Public Use
  Company Number: PHHY2014BR164363

PATIENT
  Age: 30 Year
  Sex: Male

DRUGS (1)
  1. BUDESONIDE, FORMOTEROL FUMARATE [Suspect]
     Active Substance: BUDESONIDE\FORMOTEROL FUMARATE DIHYDRATE
     Indication: PRODUCT USED FOR UNKNOWN INDICATION
     Dosage: UNK UNK, BID
     Route: 055

REACTIONS (13)
  - Bronchospasm [Recovering/Resolving]
  - Nasal polyps [Unknown]
  - Asthma [Recovering/Resolving]
  - Sleep disorder [Unknown]
  - Urticaria [Unknown]
  - Eosinophilia [Unknown]
  - Cough [Recovering/Resolving]
  - Blood immunoglobulin E increased [Unknown]
  - Gastrooesophageal reflux disease [Unknown]
  - Nasal obstruction [Recovering/Resolving]
  - Sinusitis [Recovering/Resolving]
  - Nasal pruritus [Recovering/Resolving]
  - Rhinitis allergic [Recovering/Resolving]
